FAERS Safety Report 10003605 (Version 1)
Quarter: 2014Q1

REPORT INFORMATION
  Report Type: Spontaneous
  Country: DK (occurrence: GB)
  Receive Date: 20140312
  Receipt Date: 20140312
  Transmission Date: 20141002
  Serious: Yes (Other)
  Sender: FDA-Public Use
  Company Number: GB-FRI-1000060436

PATIENT
  Age: 57 Year
  Sex: Male
  Weight: 91 kg

DRUGS (4)
  1. CITALOPRAM [Suspect]
     Indication: BIPOLAR DISORDER
     Dosage: 20 MG DAILY
     Route: 048
     Dates: start: 1999
  2. DEPAKOTE [Suspect]
     Indication: BIPOLAR DISORDER
     Dosage: 1000 MG DAILY
     Dates: start: 1999
  3. PREDNISOLONE [Suspect]
     Indication: SARCOIDOSIS
     Dosage: 40 MG DAILY
     Dates: start: 20120218
  4. PREDNISOLONE [Suspect]
     Dosage: 20 MG DAILY
     Dates: end: 20131002

REACTIONS (6)
  - Mental disorder [Not Recovered/Not Resolved]
  - Panic attack [Not Recovered/Not Resolved]
  - Depression [Not Recovered/Not Resolved]
  - Anxiety [Not Recovered/Not Resolved]
  - Condition aggravated [Not Recovered/Not Resolved]
  - Off label use [Unknown]
